FAERS Safety Report 9740680 (Version 1)
Quarter: 2013Q4

REPORT INFORMATION
  Report Type: Spontaneous
  Country: US (occurrence: US)
  Receive Date: 20131209
  Receipt Date: 20131209
  Transmission Date: 20140711
  Serious: No
  Sender: FDA-Public Use
  Company Number: US-BIOGENIDEC-2013BI095113

PATIENT
  Sex: Female

DRUGS (5)
  1. TECFIDERA [Suspect]
     Indication: PRODUCT USED FOR UNKNOWN INDICATION
     Route: 048
  2. LYRICA [Concomitant]
  3. PAROXETINE [Concomitant]
  4. LEVOCETIRIZI [Concomitant]
  5. BENADRYL ALG [Concomitant]

REACTIONS (2)
  - Pruritus generalised [Recovered/Resolved]
  - Rash [Recovered/Resolved]
